FAERS Safety Report 6114369-3 (Version None)
Quarter: 2009Q1

REPORT INFORMATION
  Report Type: 
  Country: None (occurrence: None)
  Receive Date: 20090313
  Receipt Date: 20090302
  Transmission Date: 20090719
  Serious: Yes (Life-Threatening, Hospitalization)
  Sender: FDA-Public Use
  Company Number: DE-RANBAXY-2009RR-22336

PATIENT
  Age: 83 Year
  Sex: Male

DRUGS (17)
  1. ENALAPRIL [Suspect]
     Dosage: 10 MG, BID
     Route: 048
  2. PROTAPHANE MC [Suspect]
     Dosage: 20 IU, QD
     Route: 058
  3. INSULIN ACTRAPID HUMAN [Suspect]
     Route: 058
  4. ACETYLCYSTEINE [Concomitant]
     Dosage: 600 MG, QD
     Route: 048
  5. ALLOPURINOL [Concomitant]
     Dosage: 100 MG, QD
     Route: 048
  6. BEROTEC [Concomitant]
     Dosage: 100 UG, QD
     Route: 055
  7. DIGITOXIN TAB [Concomitant]
     Dosage: 0.07 MG, UNK
     Route: 048
  8. FALICARD ^ASTA MEDICA^ [Concomitant]
     Dosage: 40 MG, QD
     Route: 048
  9. FALITHROM ^HEXAL^ [Concomitant]
     Route: 048
  10. FURORESE [Concomitant]
     Dosage: 20 MG, BID
     Route: 048
  11. HYDROCHLOROTHIAZIDE [Concomitant]
     Dosage: 12.5 MG, QD
     Route: 048
  12. LEVOTHYROXINE SODIUM [Concomitant]
     Dosage: 50 UG, QD
     Route: 048
  13. NOVALGIN/SCH/ [Concomitant]
     Dosage: 500 MG, TID
     Route: 048
  14. OXIS TURBUHALER ^ASTRAZENECA^ [Concomitant]
     Dosage: 1 DF, QD
     Route: 055
  15. SIMVASTATIN [Concomitant]
     Dosage: 10 MG, QD
     Route: 048
  16. SPIRIVA [Concomitant]
     Dosage: 22.5 UG, QD
     Route: 055
  17. TRAMADOLOR ^HEXAL^ [Concomitant]
     Dosage: 200 MG, UNK
     Route: 048

REACTIONS (1)
  - HYPOGLYCAEMIA [None]
